FAERS Safety Report 19612637 (Version 1)
Quarter: 2021Q3

REPORT INFORMATION
  Report Type: Spontaneous
  Country: MT (occurrence: MT)
  Receive Date: 20210727
  Receipt Date: 20210727
  Transmission Date: 20211014
  Serious: Yes (Life-Threatening, Hospitalization)
  Sender: FDA-Public Use
  Company Number: MT-LUPIN PHARMACEUTICALS INC.-2021-12939

PATIENT
  Age: 39 Year
  Sex: Female

DRUGS (6)
  1. ACICLOVIR [Concomitant]
     Active Substance: ACYCLOVIR
     Indication: ENCEPHALITIS
     Dosage: UNK
     Route: 042
  2. CEFTRIAXONE. [Concomitant]
     Active Substance: CEFTRIAXONE
     Indication: ENCEPHALITIS
     Dosage: UNK
     Route: 042
  3. METHYLPREDNISOLONE. [Suspect]
     Active Substance: METHYLPREDNISOLONE
     Indication: ACUTE HAEMORRHAGIC LEUKOENCEPHALITIS
     Dosage: UNK
     Route: 042
  4. IMMUNOGLOBULIN (IMMUNOGLOBULIN HUMAN NORMAL) [Suspect]
     Active Substance: HUMAN IMMUNOGLOBULIN G
     Indication: ACUTE HAEMORRHAGIC LEUKOENCEPHALITIS
     Dosage: UNK
     Route: 042
  5. LEVETIRACETAM. [Suspect]
     Active Substance: LEVETIRACETAM
     Indication: ACUTE HAEMORRHAGIC LEUKOENCEPHALITIS
     Dosage: UNK
     Route: 042
  6. DEXAMETHASONE. [Concomitant]
     Active Substance: DEXAMETHASONE
     Indication: ENCEPHALITIS
     Dosage: UNK
     Route: 042

REACTIONS (1)
  - Drug ineffective [Unknown]
